FAERS Safety Report 14768747 (Version 82)
Quarter: 2022Q4

REPORT INFORMATION
  Report Type: Other
  Country: CA (occurrence: None)
  Receive Date: 20180417
  Receipt Date: 20221220
  Transmission Date: 20230112
  Serious: Yes (Other)
  Sender: FDA-Public Use
  Company Number: CA-ROCHE-1173899

PATIENT
  Sex: Female
  Weight: 96 kg

DRUGS (48)
  1. ACTEMRA [Suspect]
     Active Substance: TOCILIZUMAB
     Indication: Rheumatoid arthritis
     Dosage: ON 10/SEP/2020, SHE RECEIVED HER LAST TOCILIZUMAB INFUSION (B2098 EXP 30/JUN/2020).
     Route: 042
     Dates: start: 20111019, end: 20120430
  2. ACTEMRA [Suspect]
     Active Substance: TOCILIZUMAB
     Route: 042
     Dates: start: 20180104, end: 20200226
  3. ACTEMRA [Suspect]
     Active Substance: TOCILIZUMAB
     Route: 042
     Dates: start: 20180424
  4. ACTEMRA [Suspect]
     Active Substance: TOCILIZUMAB
     Route: 042
     Dates: start: 20180522
  5. ACTEMRA [Suspect]
     Active Substance: TOCILIZUMAB
     Route: 042
     Dates: start: 20180620
  6. ACTEMRA [Suspect]
     Active Substance: TOCILIZUMAB
     Route: 042
     Dates: start: 20120627, end: 20120725
  7. ACTEMRA [Suspect]
     Active Substance: TOCILIZUMAB
     Route: 042
     Dates: start: 20120822, end: 20160205
  8. ACTEMRA [Suspect]
     Active Substance: TOCILIZUMAB
     Route: 042
     Dates: start: 20120308, end: 20190806
  9. ACTEMRA [Suspect]
     Active Substance: TOCILIZUMAB
     Route: 042
     Dates: start: 20190903
  10. ACTEMRA [Suspect]
     Active Substance: TOCILIZUMAB
     Route: 042
     Dates: start: 20200325
  11. ACTEMRA [Suspect]
     Active Substance: TOCILIZUMAB
     Route: 042
     Dates: start: 2019
  12. ACTEMRA [Suspect]
     Active Substance: TOCILIZUMAB
     Route: 042
     Dates: start: 20160308, end: 2019
  13. ACTEMRA [Suspect]
     Active Substance: TOCILIZUMAB
     Route: 042
     Dates: start: 20120528, end: 20120725
  14. ENBREL [Suspect]
     Active Substance: ETANERCEPT
     Indication: Product used for unknown indication
     Route: 065
  15. PREDNISONE [Suspect]
     Active Substance: PREDNISONE
     Indication: Product used for unknown indication
     Route: 065
  16. ACTONEL [Concomitant]
     Active Substance: RISEDRONATE SODIUM
     Indication: Product used for unknown indication
  17. AVAPRO [Concomitant]
     Active Substance: IRBESARTAN
     Indication: Product used for unknown indication
  18. METHOTREXATE [Concomitant]
     Active Substance: METHOTREXATE
     Indication: Product used for unknown indication
  19. MYRBETRIQ [Concomitant]
     Active Substance: MIRABEGRON
     Indication: Product used for unknown indication
  20. KOMBIGLYZE XR [Concomitant]
     Active Substance: METFORMIN HYDROCHLORIDE\SAXAGLIPTIN HYDROCHLORIDE
     Indication: Diabetes mellitus
  21. IRBESARTAN [Concomitant]
     Active Substance: IRBESARTAN
     Indication: Product used for unknown indication
  22. PANTOPRAZOLE [Concomitant]
     Active Substance: PANTOPRAZOLE
     Indication: Product used for unknown indication
  23. FISH OIL [Concomitant]
     Active Substance: FISH OIL
     Indication: Product used for unknown indication
  24. NALOXONE HYDROCHLORIDE\OXYCODONE HYDROCHLORIDE [Concomitant]
     Active Substance: NALOXONE HYDROCHLORIDE\OXYCODONE HYDROCHLORIDE
     Indication: Pain
  25. CANNABIS SATIVA SUBSP. INDICA TOP [Concomitant]
     Active Substance: CANNABIS SATIVA SUBSP. INDICA TOP
     Indication: Product used for unknown indication
  26. ZOPICLONE [Concomitant]
     Active Substance: ZOPICLONE
     Indication: Product used for unknown indication
  27. ATORVASTATIN [Concomitant]
     Active Substance: ATORVASTATIN
     Indication: Product used for unknown indication
  28. ASPIRIN [Concomitant]
     Active Substance: ASPIRIN
     Indication: Product used for unknown indication
  29. LEFLUNOMIDE [Concomitant]
     Active Substance: LEFLUNOMIDE
     Indication: Product used for unknown indication
     Route: 065
  30. DAPAGLIFLOZIN [Concomitant]
     Active Substance: DAPAGLIFLOZIN
     Indication: Product used for unknown indication
  31. TOUJEO [Concomitant]
     Active Substance: INSULIN GLARGINE
  32. OZEMPIC [Concomitant]
     Active Substance: SEMAGLUTIDE
     Indication: Product used for unknown indication
  33. CITALOPRAM [Concomitant]
     Active Substance: CITALOPRAM HYDROBROMIDE
  34. AMLODIPINE [Concomitant]
     Active Substance: AMLODIPINE BESYLATE
     Indication: Product used for unknown indication
  35. CALCIUM [Concomitant]
     Active Substance: CALCIUM
     Indication: Product used for unknown indication
  36. CANNABIDIOL [Concomitant]
     Active Substance: CANNABIDIOL
  37. CORTEF [Concomitant]
     Active Substance: HYDROCORTISONE
     Indication: Product used for unknown indication
  38. CRESTOR [Concomitant]
     Active Substance: ROSUVASTATIN CALCIUM
     Indication: Product used for unknown indication
     Dates: end: 201905
  39. DICLOFENAC [Concomitant]
     Active Substance: DICLOFENAC
     Indication: Product used for unknown indication
  40. DILAUDID [Concomitant]
     Active Substance: HYDROMORPHONE HYDROCHLORIDE
     Indication: Product used for unknown indication
  41. FOLIC ACID [Concomitant]
     Active Substance: FOLIC ACID
     Indication: Product used for unknown indication
  42. PREGABALIN [Concomitant]
     Active Substance: PREGABALIN
     Indication: Product used for unknown indication
  43. TYLENOL [Concomitant]
     Active Substance: ACETAMINOPHEN
     Indication: Product used for unknown indication
  44. CITALOPRAM [Concomitant]
     Active Substance: CITALOPRAM HYDROBROMIDE
     Indication: Product used for unknown indication
  45. TOUJEO [Concomitant]
     Active Substance: INSULIN GLARGINE
     Indication: Product used for unknown indication
  46. DOXYCYCLINE [Concomitant]
     Active Substance: DOXYCYCLINE
     Dates: start: 20210423, end: 20210430
  47. FLUCONAZOLE [Concomitant]
     Active Substance: FLUCONAZOLE
  48. ASPIRIN [Concomitant]
     Active Substance: ASPIRIN

REACTIONS (69)
  - Helicobacter infection [Unknown]
  - Gait disturbance [Unknown]
  - Arthralgia [Not Recovered/Not Resolved]
  - Neck pain [Not Recovered/Not Resolved]
  - Pain [Recovering/Resolving]
  - Oedema peripheral [Not Recovered/Not Resolved]
  - Drug ineffective [Unknown]
  - Pain in extremity [Unknown]
  - Dizziness [Unknown]
  - Weight increased [Not Recovered/Not Resolved]
  - Joint swelling [Unknown]
  - Nasopharyngitis [Unknown]
  - Peripheral swelling [Recovering/Resolving]
  - Skin induration [Unknown]
  - Feeling hot [Unknown]
  - Dyspnoea [Not Recovered/Not Resolved]
  - Joint swelling [Not Recovered/Not Resolved]
  - Cough [Recovered/Resolved]
  - Diarrhoea [Recovered/Resolved]
  - Underdose [Unknown]
  - Incorrect dose administered [Unknown]
  - Nausea [Recovered/Resolved]
  - Skin ulcer [Unknown]
  - Blood pressure increased [Unknown]
  - Blood glucose increased [Not Recovered/Not Resolved]
  - Blood pressure fluctuation [Unknown]
  - Blood pressure systolic increased [Unknown]
  - Disability assessment scale score increased [Unknown]
  - Feeling jittery [Not Recovered/Not Resolved]
  - Hypertension [Unknown]
  - Feeling hot [Not Recovered/Not Resolved]
  - Platelet count decreased [Unknown]
  - Arthropathy [Unknown]
  - Weight decreased [Unknown]
  - Movement disorder [Unknown]
  - Heart rate increased [Unknown]
  - Adrenal insufficiency [Unknown]
  - Cortisol decreased [Unknown]
  - Back pain [Unknown]
  - Oxygen saturation decreased [Unknown]
  - Oedema [Not Recovered/Not Resolved]
  - Sinusitis [Recovering/Resolving]
  - Osteoarthritis [Unknown]
  - Multiple fractures [Unknown]
  - Productive cough [Recovered/Resolved]
  - Alanine aminotransferase increased [Unknown]
  - Hepatic enzyme increased [Unknown]
  - Musculoskeletal stiffness [Not Recovered/Not Resolved]
  - Malaise [Recovered/Resolved]
  - Heart rate decreased [Unknown]
  - Arthritis [Not Recovered/Not Resolved]
  - Spinal pain [Unknown]
  - Blood pressure diastolic decreased [Unknown]
  - Blood pressure diastolic abnormal [Unknown]
  - Hypersensitivity [Unknown]
  - Eye swelling [Unknown]
  - Rhinorrhoea [Unknown]
  - Cystitis [Unknown]
  - Kidney infection [Unknown]
  - Blood pressure systolic abnormal [Unknown]
  - Lacrimation increased [Recovering/Resolving]
  - Dysphonia [Recovering/Resolving]
  - Peripheral swelling [Recovered/Resolved]
  - Illness [Not Recovered/Not Resolved]
  - Back pain [Not Recovered/Not Resolved]
  - Headache [Unknown]
  - Lower respiratory tract infection [Recovered/Resolved]
  - Bronchitis [Recovering/Resolving]
  - Malaise [Unknown]

NARRATIVE: CASE EVENT DATE: 20120101
